FAERS Safety Report 22539876 (Version 1)
Quarter: 2023Q2

REPORT INFORMATION
  Report Type: Spontaneous
  Country: US (occurrence: US)
  Receive Date: 20230609
  Receipt Date: 20230609
  Transmission Date: 20230722
  Serious: Yes (Other)
  Sender: FDA-Public Use
  Company Number: US-002147023-GXKR2007US04834

PATIENT
  Age: 11 Year
  Sex: Female

DRUGS (4)
  1. RISPERIDONE [Interacting]
     Active Substance: RISPERIDONE
     Dosage: 1.75 MG/DAY IN DIVIDED DOSES
     Route: 065
  2. RISPERIDONE [Interacting]
     Active Substance: RISPERIDONE
     Dosage: 2 MG/DAY IN DIVIDED DOSES
     Route: 065
  3. METHYLPHENIDATE [Interacting]
     Active Substance: METHYLPHENIDATE
     Dosage: 30 MG/DAY IN DIVIDED DOSES
     Route: 065
  4. VALPROIC ACID [Concomitant]
     Active Substance: VALPROIC ACID
     Dosage: 750 MG/DAY IN DIVIDED DOSES
     Route: 065

REACTIONS (5)
  - Dystonia [Recovered/Resolved]
  - Movement disorder [Recovered/Resolved]
  - Torticollis [Recovered/Resolved]
  - Muscle spasms [Recovered/Resolved]
  - Drug interaction [Recovered/Resolved]
